FAERS Safety Report 9122762 (Version 1)
Quarter: 2013Q1

REPORT INFORMATION
  Report Type: Spontaneous
  Country: FR (occurrence: FR)
  Receive Date: 20130227
  Receipt Date: 20130227
  Transmission Date: 20140127
  Serious: Yes (Hospitalization)
  Sender: FDA-Public Use
  Company Number: FR-SANOFI-AVENTIS-2013SA016380

PATIENT
  Age: 31 Year
  Sex: Female

DRUGS (3)
  1. RIFINAH [Suspect]
     Indication: TUBERCULOSIS
     Route: 065
     Dates: start: 20121220, end: 20130130
  2. RIFATER [Concomitant]
     Indication: PULMONARY TUBERCULOSIS
     Dates: start: 20121020, end: 20121220
  3. RIFATER [Concomitant]
     Indication: LYMPH NODE TUBERCULOSIS
     Dates: start: 20121020, end: 20121220

REACTIONS (3)
  - General physical health deterioration [Unknown]
  - Hyperthyroidism [Unknown]
  - Hepatocellular injury [Unknown]
